FAERS Safety Report 11058020 (Version 1)
Quarter: 2015Q2

REPORT INFORMATION
  Report Type: Spontaneous
  Country: ES (occurrence: ES)
  Receive Date: 20150423
  Receipt Date: 20150423
  Transmission Date: 20150821
  Serious: Yes (Other)
  Sender: FDA-Public Use
  Company Number: ES-ROCHE-1566773

PATIENT
  Age: 40 Year
  Sex: Male

DRUGS (2)
  1. METILPREDNISOLONA [Concomitant]
     Route: 065
     Dates: start: 200804
  2. ROACTEMRA [Suspect]
     Active Substance: TOCILIZUMAB
     Indication: STILL^S DISEASE ADULT ONSET
     Dosage: DOSE: 20 MG/ML.
     Route: 042
     Dates: start: 20140910, end: 20140910

REACTIONS (1)
  - Toxic skin eruption [Recovered/Resolved]

NARRATIVE: CASE EVENT DATE: 20140910
